FAERS Safety Report 4520705-1 (Version None)
Quarter: 2004Q4

REPORT INFORMATION
  Report Type: 
  Country: None (occurrence: None)
  Receive Date: 20041203
  Receipt Date: 20041123
  Transmission Date: 20050328
  Serious: Yes (Hospitalization)
  Sender: FDA-Public Use
  Company Number: STA-AE-04-MTX-593

PATIENT
  Sex: Male

DRUGS (4)
  1. METHOTREXATE [Suspect]
     Indication: PSORIATIC ARTHROPATHY
     Dosage: ORAL
     Route: 048
  2. ENBREL [Suspect]
     Indication: ANKYLOSING SPONDYLITIS
     Dosage: SC
     Route: 058
  3. ENBREL [Suspect]
     Indication: PSORIATIC ARTHROPATHY
     Dosage: SC
     Route: 058
  4. CORTICOSTEROIDS (CORTICOSTEROIDS) [Suspect]
     Indication: PSORIATIC ARTHROPATHY

REACTIONS (4)
  - ARRHYTHMIA [None]
  - CONDITION AGGRAVATED [None]
  - ECHINOCOCCIASIS [None]
  - MYOCARDIAL ISCHAEMIA [None]
